FAERS Safety Report 17009413 (Version 1)
Quarter: 2019Q4

REPORT INFORMATION
  Report Type: Report from Study
  Country: None (occurrence: US)
  Receive Date: 20191108
  Receipt Date: 20191108
  Transmission Date: 20200122
  Serious: Yes (Hospitalization)
  Sender: FDA-Public Use
  Company Number: US-ABBVIE-19K-163-2994527-00

PATIENT
  Age: 77 Year
  Sex: Female

DRUGS (2)
  1. VIDAZA [Concomitant]
     Active Substance: AZACITIDINE
     Indication: ACUTE MYELOID LEUKAEMIA
  2. VENCLEXTA [Suspect]
     Active Substance: VENETOCLAX
     Indication: ACUTE MYELOID LEUKAEMIA
     Route: 048
     Dates: start: 20191021

REACTIONS (7)
  - Depressed mood [Recovering/Resolving]
  - Asthenia [Recovering/Resolving]
  - Haemoglobin abnormal [Recovering/Resolving]
  - Fatigue [Recovering/Resolving]
  - Emotional disorder [Recovering/Resolving]
  - Crying [Recovering/Resolving]
  - Sleep deficit [Recovering/Resolving]

NARRATIVE: CASE EVENT DATE: 2019
